FAERS Safety Report 7525572-X (Version None)
Quarter: 2011Q2

REPORT INFORMATION
  Report Type: 
  Country: None (occurrence: None)
  Receive Date: 20110602
  Receipt Date: 20110602
  Transmission Date: 20111010
  Serious: Yes (Hospitalization)
  Sender: FDA-Public Use
  Company Number: None

PATIENT
  Sex: Male
  Weight: 16.8 kg

DRUGS (2)
  1. TRILEPTAL [Suspect]
     Indication: EPILEPSY
     Dosage: 1.5ML TWICE DAILY 047
     Route: 048
     Dates: start: 20110426
  2. TRILEPTAL [Suspect]
     Indication: EPILEPSY
     Dosage: 1.5ML TWICE DAILY 047
     Route: 048
     Dates: start: 20110427

REACTIONS (1)
  - CONVULSION [None]
